FAERS Safety Report 21264241 (Version 6)
Quarter: 2025Q2

REPORT INFORMATION
  Report Type: Spontaneous
  Country: FR (occurrence: FR)
  Receive Date: 20220829
  Receipt Date: 20250624
  Transmission Date: 20250717
  Serious: Yes (Other)
  Sender: AUROBINDO
  Company Number: FR-OHRE-2022000575

PATIENT
  Age: 95 Year
  Sex: Female

DRUGS (19)
  1. BORTEZOMIB [Suspect]
     Active Substance: BORTEZOMIB
     Indication: Non-Hodgkin^s lymphoma
     Route: 058
  2. BORTEZOMIB [Suspect]
     Active Substance: BORTEZOMIB
     Indication: Primary amyloidosis
     Route: 058
  3. CYCLOPHOSPHAMIDE [Suspect]
     Active Substance: CYCLOPHOSPHAMIDE
     Indication: Non-Hodgkin^s lymphoma
     Route: 048
  4. CYCLOPHOSPHAMIDE [Suspect]
     Active Substance: CYCLOPHOSPHAMIDE
     Indication: Primary amyloidosis
     Route: 048
  5. DEXAMETHASONE [Suspect]
     Active Substance: DEXAMETHASONE
     Indication: Non-Hodgkin^s lymphoma
     Route: 048
  6. DEXAMETHASONE [Suspect]
     Active Substance: DEXAMETHASONE
     Indication: Primary amyloidosis
     Route: 048
  7. DEXAMETHASONE [Suspect]
     Active Substance: DEXAMETHASONE
     Route: 065
  8. DARATUMUMAB [Suspect]
     Active Substance: DARATUMUMAB
     Indication: Primary amyloidosis
     Route: 042
  9. DARATUMUMAB [Suspect]
     Active Substance: DARATUMUMAB
     Route: 058
  10. RITUXIMAB [Suspect]
     Active Substance: RITUXIMAB
     Indication: Primary amyloidosis
     Route: 065
  11. RITUXIMAB [Suspect]
     Active Substance: RITUXIMAB
     Indication: Lymphoplasmacytoid lymphoma/immunocytoma
     Route: 065
  12. RITUXIMAB [Suspect]
     Active Substance: RITUXIMAB
     Route: 065
  13. BENDAMUSTINE [Concomitant]
     Active Substance: BENDAMUSTINE
     Indication: Primary amyloidosis
     Route: 065
  14. BENDAMUSTINE [Concomitant]
     Active Substance: BENDAMUSTINE
     Indication: Lymphoplasmacytoid lymphoma/immunocytoma
  15. CILGAVIMAB [Concomitant]
     Active Substance: CILGAVIMAB
     Indication: COVID-19
     Route: 065
  16. CILGAVIMAB [Concomitant]
     Active Substance: CILGAVIMAB
     Route: 065
  17. COVID-19 vaccine [Concomitant]
     Indication: COVID-19 immunisation
     Route: 065
  18. TIXAGEVIMAB [Concomitant]
     Active Substance: TIXAGEVIMAB
     Indication: COVID-19
     Route: 065
  19. TIXAGEVIMAB [Concomitant]
     Active Substance: TIXAGEVIMAB
     Route: 065

REACTIONS (10)
  - Erysipelas [Unknown]
  - Atrial fibrillation [Unknown]
  - Cardiac failure congestive [Unknown]
  - Acute kidney injury [Unknown]
  - Neutropenia [Unknown]
  - Gout [Unknown]
  - Drug ineffective [Unknown]
  - Off label use [Unknown]
  - Vaccination failure [Unknown]
  - Therapy non-responder [Unknown]
